FAERS Safety Report 19395480 (Version 1)
Quarter: 2021Q2

REPORT INFORMATION
  Report Type: Spontaneous
  Country: GB (occurrence: GB)
  Receive Date: 20210609
  Receipt Date: 20210609
  Transmission Date: 20210717
  Serious: Yes (Life-Threatening, Other)
  Sender: FDA-Public Use
  Company Number: GB-TEVA-2021-GB-1919108

PATIENT
  Age: 35 Year
  Sex: Female

DRUGS (4)
  1. ADRENALINE [Suspect]
     Active Substance: EPINEPHRINE
     Dosage: 0.5 MG
  2. EPIPEN [Suspect]
     Active Substance: EPINEPHRINE
     Route: 065
  3. BECLOMETHASONE [Suspect]
     Active Substance: BECLOMETHASONE
     Route: 065
  4. MODERNA COVID?19 VACCINE [Suspect]
     Active Substance: CX-024414
     Dosage: DOSE 1
     Dates: start: 20210528

REACTIONS (4)
  - Dysphonia [Unknown]
  - Pharyngeal oedema [Not Recovered/Not Resolved]
  - Hypopnoea [Unknown]
  - Swelling [Unknown]

NARRATIVE: CASE EVENT DATE: 20210528
